FAERS Safety Report 13270450 (Version 2)
Quarter: 2017Q1

REPORT INFORMATION
  Report Type: Spontaneous
  Country: US (occurrence: US)
  Receive Date: 20170224
  Receipt Date: 20170329
  Transmission Date: 20170428
  Serious: No
  Sender: FDA-Public Use
  Company Number: US-ACTELION-A-US2017-150295

PATIENT
  Age: 46 Year
  Sex: Female

DRUGS (8)
  1. ADCIRCA [Concomitant]
     Active Substance: TADALAFIL
  2. ATENOLOL. [Concomitant]
     Active Substance: ATENOLOL
  3. POTASSIUM [Concomitant]
     Active Substance: POTASSIUM
  4. MULTIVITAMIN [Concomitant]
     Active Substance: VITAMINS
  5. KLOR-CON [Concomitant]
     Active Substance: POTASSIUM CHLORIDE
  6. OPSUMIT [Suspect]
     Active Substance: MACITENTAN
     Indication: PULMONARY ARTERIAL HYPERTENSION
     Dosage: 10 MG, QD
     Route: 048
     Dates: start: 20151022
  7. SPIRONOLACTONE. [Concomitant]
     Active Substance: SPIRONOLACTONE
  8. MOTRIN [Concomitant]
     Active Substance: IBUPROFEN

REACTIONS (3)
  - Nasal dryness [Not Recovered/Not Resolved]
  - Dry mouth [Recovered/Resolved]
  - Diarrhoea [Recovered/Resolved]

NARRATIVE: CASE EVENT DATE: 20170321
